FAERS Safety Report 5721364-2 (Version None)
Quarter: 2008Q2

REPORT INFORMATION
  Report Type: 
  Country: None (occurrence: None)
  Receive Date: 20080429
  Receipt Date: 20080425
  Transmission Date: 20081010
  Serious: Yes (Life-Threatening, Hospitalization)
  Sender: FDA-Public Use
  Company Number: US-SANOFI-SYNTHELABO-F01200800662

PATIENT
  Sex: Male

DRUGS (4)
  1. BEVACIZUMAB [Suspect]
     Route: 042
     Dates: start: 20060103, end: 20060103
  2. LEUCOVORIN CALCIUM [Suspect]
     Route: 042
     Dates: start: 20060103, end: 20060103
  3. FLUOROURACIL [Suspect]
     Dosage: 400 MG/M2 IV BOLUS AND 2400 MG/M2 IV CONTINUOUS INFUSION FOR 46 HOURS, Q2W
     Route: 042
     Dates: start: 20060103, end: 20060105
  4. OXALIPLATIN [Suspect]
     Indication: COLON CANCER
     Route: 042
     Dates: start: 20060103, end: 20060103

REACTIONS (3)
  - DISEASE PROGRESSION [None]
  - MYOCARDIAL ISCHAEMIA [None]
  - THROMBOSIS [None]
